FAERS Safety Report 8819988 (Version 2)
Quarter: 2012Q4

REPORT INFORMATION
  Report Type: 
  Country: GB (occurrence: GB)
  Receive Date: 20121001
  Receipt Date: 20121017
  Transmission Date: 20130627
  Serious: Yes (Hospitalization)
  Sender: FDA-Public Use
  Company Number: PHHY2012GB083002

PATIENT
  Age: 47 Year
  Sex: Female

DRUGS (12)
  1. ACETYLSALICYLIC ACID [Suspect]
     Dates: end: 20070116
  2. CAPECITABINE [Suspect]
     Indication: COLON CANCER
     Dosage: 1650 mg, UNK
     Route: 048
     Dates: start: 20061214, end: 20070108
  3. CAPECITABINE [Suspect]
     Indication: COLON CANCER
     Dosage: 2300 mg, once in 3 weeks
     Route: 048
     Dates: end: 20070130
  4. CAPECITABINE [Suspect]
     Route: 048
     Dates: start: 20070201
  5. OXALIPLATIN [Suspect]
     Indication: COLON CANCER
     Dosage: 220 mg, TIW
     Route: 042
     Dates: start: 20061214
  6. BEVACIZUMAB [Suspect]
     Dosage: 500 mg, once in 3 weeks
     Route: 042
     Dates: start: 20061214
  7. CETUXIMAB [Suspect]
  8. DEXAMETHASONE [Concomitant]
  9. LANSOPRAZOLE [Concomitant]
     Dosage: 30 mg, UNK
  10. LOPERAMIDE [Concomitant]
     Dosage: 2 mg, UNK
  11. LORAZEPAM [Concomitant]
     Dosage: 1 mg, UNK
  12. METOCLOPRAMIDE [Concomitant]
     Dosage: 10 mg, UNK

REACTIONS (5)
  - Faeces discoloured [Recovered/Resolved]
  - Throat tightness [Recovered/Resolved]
  - Vomiting [Recovered/Resolved]
  - Blood creatinine decreased [Unknown]
  - Blood potassium decreased [Unknown]
